FAERS Safety Report 9259275 (Version 1)
Quarter: 2013Q2

REPORT INFORMATION
  Report Type: Spontaneous
  Country: US (occurrence: US)
  Receive Date: 20130426
  Receipt Date: 20130426
  Transmission Date: 20140414
  Serious: Yes (Congenital Anomaly)
  Sender: FDA-Public Use
  Company Number: US-MERCK-0508USA03790

PATIENT
  Age: 39 Year
  Sex: Female

DRUGS (4)
  1. SINGULAIR [Suspect]
     Indication: ASTHMA
     Dosage: 10 MG, QD
     Route: 048
     Dates: start: 1999
  2. ALBUTEROL [Suspect]
     Indication: ASTHMA
     Dosage: UNK UNK, PRN
     Route: 015
  3. YASMIN [Concomitant]
  4. ZYRTEC [Concomitant]
     Dosage: 1, QOD
     Route: 048

REACTIONS (3)
  - Limb reduction defect [Not Recovered/Not Resolved]
  - Myalgia [Not Recovered/Not Resolved]
  - Exposure during pregnancy [Recovered/Resolved]
